FAERS Safety Report 20713984 (Version 11)
Quarter: 2022Q3

REPORT INFORMATION
  Report Type: Report from Study
  Country: KR (occurrence: None)
  Receive Date: 20220415
  Receipt Date: 20220803
  Transmission Date: 20221027
  Serious: Yes (Hospitalization)
  Sender: FDA-Public Use
  Company Number: KR-Eisai Medical Research-EC-2022-112914

PATIENT
  Age: 63 Year
  Sex: Male
  Weight: 63 kg

DRUGS (15)
  1. LENVATINIB [Suspect]
     Active Substance: LENVATINIB
     Indication: Pancreatic carcinoma
     Dosage: STARTING DOSE 20 MG (FLUCTUATED DOSAGE)
     Route: 048
     Dates: start: 20210611, end: 20220325
  2. LENVATINIB [Suspect]
     Active Substance: LENVATINIB
     Route: 048
     Dates: start: 20220326, end: 20220326
  3. PEMBROLIZUMAB [Suspect]
     Active Substance: PEMBROLIZUMAB
     Indication: Pancreatic carcinoma
     Route: 041
     Dates: start: 20210611, end: 20220218
  4. PEMBROLIZUMAB [Suspect]
     Active Substance: PEMBROLIZUMAB
     Route: 041
     Dates: start: 20220311, end: 20220311
  5. PEMBROLIZUMAB [Suspect]
     Active Substance: PEMBROLIZUMAB
     Route: 041
     Dates: start: 20220513
  6. METFORMIN HYDROCHLORIDE [Concomitant]
     Active Substance: METFORMIN HYDROCHLORIDE
     Dates: start: 202101
  7. OXYCODONE HYDROCHLORIDE [Concomitant]
     Active Substance: OXYCODONE HYDROCHLORIDE
     Dates: start: 20210702
  8. AMOSARTAN PLUS [Concomitant]
     Dates: start: 20210702
  9. FENTANYL [Concomitant]
     Active Substance: FENTANYL
     Dates: start: 20211222
  10. LEVOTHYROXINE SODIUM [Concomitant]
     Active Substance: LEVOTHYROXINE SODIUM
     Dates: start: 20220107, end: 20220414
  11. NEURONTIN [Concomitant]
     Active Substance: GABAPENTIN
     Dates: start: 20220207
  12. METHYLCOBALAMIN [Concomitant]
     Active Substance: METHYLCOBALAMIN
     Dates: start: 20220216
  13. EXOPERINE [Concomitant]
     Dates: start: 20220218, end: 20220331
  14. NALOXONE HYDROCHLORIDE\OXYCODONE HYDROCHLORIDE [Concomitant]
     Active Substance: NALOXONE HYDROCHLORIDE\OXYCODONE HYDROCHLORIDE
     Dates: start: 20220218
  15. SYNATURA [Concomitant]
     Dates: start: 20220311

REACTIONS (1)
  - Venous haemorrhage [Recovered/Resolved]

NARRATIVE: CASE EVENT DATE: 20220407
